FAERS Safety Report 20562299 (Version 1)
Quarter: 2022Q1

REPORT INFORMATION
  Report Type: Spontaneous
  Country: US (occurrence: None)
  Receive Date: 20220307
  Receipt Date: 20220307
  Transmission Date: 20220423
  Serious: No
  Sender: FDA-Public Use
  Company Number: None

PATIENT

DRUGS (2)
  1. TOCILIZUMAB [Suspect]
     Active Substance: TOCILIZUMAB
  2. EMICIZUMAB [Suspect]
     Active Substance: EMICIZUMAB

REACTIONS (2)
  - Product dispensing error [None]
  - Wrong product administered [None]
